FAERS Safety Report 13782294 (Version 2)
Quarter: 2017Q3

REPORT INFORMATION
  Report Type: Spontaneous
  Country: JP (occurrence: JP)
  Receive Date: 20170724
  Receipt Date: 20170823
  Transmission Date: 20171127
  Serious: Yes (Hospitalization, Other)
  Sender: FDA-Public Use
  Company Number: JP-JNJFOC-20170717415

PATIENT
  Age: 55 Year
  Sex: Male
  Weight: 50 kg

DRUGS (5)
  1. LOXOPROFEN SODIUM [Suspect]
     Active Substance: LOXOPROFEN SODIUM
     Indication: ANALGESIC THERAPY
     Route: 048
     Dates: start: 20170608, end: 20170615
  2. TRAMCET [Suspect]
     Active Substance: ACETAMINOPHEN\TRAMADOL
     Indication: ANALGESIC THERAPY
     Dosage: AFTER EACH MEAL, AT BEDTIME
     Route: 048
     Dates: start: 20170706, end: 20170714
  3. LYRICA [Concomitant]
     Active Substance: PREGABALIN
     Route: 048
  4. TRAMCET [Suspect]
     Active Substance: ACETAMINOPHEN\TRAMADOL
     Indication: ANALGESIC THERAPY
     Dosage: AFTER EACH MEAL
     Route: 048
     Dates: start: 20170622, end: 20170705
  5. VOLTAREN [Suspect]
     Active Substance: DICLOFENAC SODIUM
     Indication: ANALGESIC THERAPY
     Route: 048
     Dates: start: 20170706, end: 20170714

REACTIONS (2)
  - Duodenal ulcer perforation [Recovered/Resolved]
  - Peritonitis [Recovered/Resolved]

NARRATIVE: CASE EVENT DATE: 20170713
